FAERS Safety Report 8438751-4 (Version None)
Quarter: 2012Q2

REPORT INFORMATION
  Report Type: 
  Country: None (occurrence: None)
  Receive Date: 20120611
  Receipt Date: 20120611
  Transmission Date: 20120825
  Serious: No
  Sender: FDA-Public Use
  Company Number: None

PATIENT
  Sex: Male

DRUGS (1)
  1. AMPYRA [Suspect]
     Indication: MULTIPLE SCLEROSIS
     Dosage: 10 MG BID PO
     Route: 048
     Dates: start: 20120501, end: 20120608

REACTIONS (5)
  - RENAL DISORDER [None]
  - DYSURIA [None]
  - URINE OUTPUT DECREASED [None]
  - BLADDER DISORDER [None]
  - BURNING SENSATION [None]
